FAERS Safety Report 24553319 (Version 2)
Quarter: 2025Q3

REPORT INFORMATION
  Report Type: Report from Study
  Country: JP (occurrence: JP)
  Receive Date: 20241028
  Receipt Date: 20250903
  Transmission Date: 20251021
  Serious: Yes (Hospitalization)
  Sender: SHIONOGI
  Company Number: JP-shionogi-202400001447

PATIENT
  Age: 59 Year
  Sex: Male
  Weight: 60 kg

DRUGS (30)
  1. CEFIDEROCOL [Suspect]
     Active Substance: CEFIDEROCOL
     Indication: Febrile neutropenia
     Route: 041
     Dates: start: 20240506, end: 20240507
  2. CEFIDEROCOL [Suspect]
     Active Substance: CEFIDEROCOL
     Indication: Enterocolitis
     Dosage: RESUMED
     Route: 041
     Dates: start: 20240524, end: 20240719
  3. DORIPENEM MONOHYDRATE [Concomitant]
     Active Substance: DORIPENEM MONOHYDRATE
     Indication: Febrile neutropenia
     Route: 065
     Dates: start: 20240510, end: 20240524
  4. DORIPENEM MONOHYDRATE [Concomitant]
     Active Substance: DORIPENEM MONOHYDRATE
     Indication: Enterocolitis
  5. DORIPENEM MONOHYDRATE [Concomitant]
     Active Substance: DORIPENEM MONOHYDRATE
     Indication: Lung opacity
  6. ACYCLOVIR [Concomitant]
     Active Substance: ACYCLOVIR
     Indication: Prophylaxis
     Route: 065
     Dates: start: 20240317
  7. PREVYMIS [Concomitant]
     Active Substance: LETERMOVIR
     Indication: Prophylaxis
     Route: 065
     Dates: start: 20240509, end: 20240531
  8. CRESEMBA [Concomitant]
     Active Substance: ISAVUCONAZONIUM SULFATE
     Indication: Lung opacity
     Route: 065
     Dates: start: 20240518, end: 20240526
  9. CRESEMBA [Concomitant]
     Active Substance: ISAVUCONAZONIUM SULFATE
     Indication: Erythema
  10. TEICOPLANIN [Concomitant]
     Active Substance: TEICOPLANIN
     Indication: Febrile neutropenia
     Route: 065
     Dates: start: 20240507, end: 20240716
  11. TEICOPLANIN [Concomitant]
     Active Substance: TEICOPLANIN
     Indication: Enterocolitis
  12. TEICOPLANIN [Concomitant]
     Active Substance: TEICOPLANIN
     Indication: Lung opacity
  13. VFEND [Concomitant]
     Active Substance: VORICONAZOLE
     Indication: Febrile neutropenia
     Route: 065
     Dates: start: 20240513, end: 20240518
  14. VFEND [Concomitant]
     Active Substance: VORICONAZOLE
     Indication: Enterocolitis
  15. NOXAFIL [Concomitant]
     Active Substance: POSACONAZOLE
     Indication: Febrile neutropenia
     Route: 048
     Dates: start: 20240315, end: 20240513
  16. NOXAFIL [Concomitant]
     Active Substance: POSACONAZOLE
     Indication: Enterocolitis
  17. AMBISOME [Concomitant]
     Active Substance: AMPHOTERICIN B
     Indication: Febrile neutropenia
     Route: 065
     Dates: start: 20240526, end: 20240814
  18. AMBISOME [Concomitant]
     Active Substance: AMPHOTERICIN B
     Indication: Enterocolitis
  19. AMBISOME [Concomitant]
     Active Substance: AMPHOTERICIN B
     Indication: Lung opacity
  20. FOSCAVIR [Concomitant]
     Active Substance: FOSCARNET SODIUM
     Indication: Human herpesvirus 6 encephalitis
     Route: 041
     Dates: start: 20240531, end: 20240625
  21. FUROSEMIDE [Concomitant]
     Active Substance: FUROSEMIDE
     Indication: Pleural effusion
     Route: 065
     Dates: start: 20240529, end: 20240604
  22. CARPERITIDE [Concomitant]
     Active Substance: CARPERITIDE
     Indication: Pleural effusion
     Route: 042
     Dates: start: 20240601, end: 20240604
  23. LEVOFLOXACIN HEMIHYDRATE [Concomitant]
     Active Substance: LEVOFLOXACIN
     Indication: Febrile neutropenia
     Route: 048
     Dates: start: 20240315, end: 20240507
  24. LEVOFLOXACIN HEMIHYDRATE [Concomitant]
     Active Substance: LEVOFLOXACIN
     Indication: Enterocolitis
  25. HUMAN RED BLOOD CELL [Concomitant]
     Active Substance: HUMAN RED BLOOD CELL
     Indication: Product used for unknown indication
     Route: 065
     Dates: start: 20240321, end: 20240629
  26. IRRADIATED PLATELET CONCENTRATE-LEUKOCYTES REDUCED [Concomitant]
     Indication: Product used for unknown indication
     Route: 065
     Dates: start: 20240415, end: 20240821
  27. ALBUMIN HUMAN [Concomitant]
     Active Substance: ALBUMIN HUMAN
     Indication: Product used for unknown indication
     Route: 065
     Dates: start: 20240511, end: 20240530
  28. PRIVIGEN [Concomitant]
     Active Substance: HUMAN IMMUNOGLOBULIN G
     Indication: Product used for unknown indication
     Route: 065
     Dates: start: 20240507, end: 20240508
  29. FILGRASTIM [Concomitant]
     Active Substance: FILGRASTIM
     Indication: Product used for unknown indication
     Route: 065
     Dates: start: 20240513, end: 20240614
  30. PROGRAF [Concomitant]
     Active Substance: TACROLIMUS
     Indication: Product used for unknown indication
     Route: 065
     Dates: start: 20240507

REACTIONS (5)
  - Lung opacity [Recovering/Resolving]
  - Pleural effusion [Recovering/Resolving]
  - Human herpesvirus 6 encephalitis [Recovered/Resolved]
  - Erythema [Recovering/Resolving]
  - Osteomyelitis [Recovering/Resolving]

NARRATIVE: CASE EVENT DATE: 20240508
